FAERS Safety Report 8015755-7 (Version None)
Quarter: 2011Q4

REPORT INFORMATION
  Report Type: 
  Country: None (occurrence: None)
  Receive Date: 20111230
  Receipt Date: 20111221
  Transmission Date: 20120403
  Serious: Yes (Other)
  Sender: FDA-Public Use
  Company Number: PHHY2011JP111306

PATIENT

DRUGS (2)
  1. TEGRETOL [Suspect]
     Indication: TRIGEMINAL NEURALGIA
     Dosage: UNK UKN, UNK
     Route: 048
  2. TRICYCLIC ANTIDEPRESSANTS [Concomitant]
     Dosage: UNK UKN, UNK
     Route: 048

REACTIONS (1)
  - HERPES ZOSTER [None]
